FAERS Safety Report 9676431 (Version 2)
Quarter: 2013Q4

REPORT INFORMATION
  Report Type: Spontaneous
  Country: US (occurrence: US)
  Receive Date: 20131107
  Receipt Date: 20131107
  Transmission Date: 20140711
  Serious: Yes (Other)
  Sender: FDA-Public Use
  Company Number: US-BAXTER-2013BAX042013

PATIENT
  Sex: Male

DRUGS (5)
  1. DIANEAL LOW CALCIUM [Suspect]
     Indication: PERITONEAL DIALYSIS
     Route: 033
     Dates: start: 201205, end: 20131021
  2. DIANEAL LOW CALCIUM [Suspect]
     Indication: PERITONEAL DIALYSIS
     Route: 033
     Dates: start: 201205, end: 20131021
  3. DIANEAL LOW CALCIUM (ULTRABAG) [Suspect]
     Indication: PERITONEAL DIALYSIS
     Route: 033
     Dates: start: 201205, end: 20131021
  4. DIANEAL LOW CALCIUM (ULTRABAG) [Suspect]
     Indication: PERITONEAL DIALYSIS
     Route: 033
     Dates: start: 201205, end: 20131021
  5. DIANEAL LOW CALCIUM (ULTRABAG) [Suspect]
     Indication: PERITONEAL DIALYSIS
     Route: 033
     Dates: start: 201205, end: 20131021

REACTIONS (8)
  - Vascular calcification [Recovering/Resolving]
  - Limb traumatic amputation [Unknown]
  - Vascular calcification [Recovering/Resolving]
  - Arterial occlusive disease [Recovering/Resolving]
  - Cholecystitis infective [Recovering/Resolving]
  - Peritonitis bacterial [Recovering/Resolving]
  - Fungal peritonitis [Recovering/Resolving]
  - Peritoneal dialysis complication [Recovered/Resolved]
